FAERS Safety Report 5119864-1 (Version None)
Quarter: 2006Q4

REPORT INFORMATION
  Report Type: 
  Country: None (occurrence: None)
  Receive Date: 20061003
  Receipt Date: 20060704
  Transmission Date: 20070319
  Serious: Yes (Hospitalization)
  Sender: FDA-Public Use
  Company Number: JP-BOEHRINGER INGELHEIM PHARMACEUTICALS, INC.-2006-BP-07623NB

PATIENT
  Sex: Female
  Weight: 29 kg

DRUGS (8)
  1. MEXITIL [Suspect]
     Indication: CARDIAC FAILURE
     Route: 048
     Dates: start: 20060523, end: 20060608
  2. MEXITIL [Suspect]
     Indication: EXTRASYSTOLES
  3. ARICEPT [Concomitant]
     Indication: DEMENTIA
     Route: 048
     Dates: start: 20060223
  4. GLIMICRON [Concomitant]
     Indication: DIABETES MELLITUS
     Route: 048
     Dates: start: 20041124
  5. LASIX [Concomitant]
     Indication: CARDIAC FAILURE
     Route: 048
     Dates: start: 20041124
  6. LANIRAPID [Concomitant]
     Indication: CARDIAC FAILURE
     Route: 048
     Dates: start: 20041124, end: 20060607
  7. ALDACTONE [Concomitant]
     Indication: CARDIAC FAILURE
     Route: 048
     Dates: start: 20041124, end: 20060607
  8. DIGOXIN [Concomitant]
     Indication: CARDIAC FAILURE
     Route: 048
     Dates: start: 20060608

REACTIONS (1)
  - RENAL FAILURE [None]
